FAERS Safety Report 25658308 (Version 1)
Quarter: 2025Q3

REPORT INFORMATION
  Report Type: Spontaneous
  Country: PR (occurrence: PR)
  Receive Date: 20250808
  Receipt Date: 20250808
  Transmission Date: 20251020
  Serious: Yes (Hospitalization)
  Sender: JOHNSON AND JOHNSON
  Company Number: PR-JNJFOC-20250739063

PATIENT
  Sex: Female

DRUGS (2)
  1. LAZCLUZE [Suspect]
     Active Substance: LAZERTINIB
     Indication: Non-small cell lung cancer metastatic
     Route: 048
  2. RYBREVANT [Suspect]
     Active Substance: AMIVANTAMAB-VMJW
     Indication: Non-small cell lung cancer metastatic
     Route: 065

REACTIONS (3)
  - Diarrhoea [Recovering/Resolving]
  - Nausea [Unknown]
  - Dehydration [Unknown]
